FAERS Safety Report 18558803 (Version 1)
Quarter: 2020Q4

REPORT INFORMATION
  Report Type: Spontaneous
  Country: US (occurrence: US)
  Receive Date: 20201125
  Receipt Date: 20201125
  Transmission Date: 20210114
  Serious: Yes (Other)
  Sender: FDA-Public Use
  Company Number: None

PATIENT
  Age: 74 Year
  Sex: Male
  Weight: 87.75 kg

DRUGS (27)
  1. SYNTHROID [Concomitant]
     Active Substance: LEVOTHYROXINE SODIUM
  2. CRESTOR [Concomitant]
     Active Substance: ROSUVASTATIN CALCIUM
  3. FUROSEMIDE. [Concomitant]
     Active Substance: FUROSEMIDE
  4. DOCUSATE STOOL SOFTENER [Concomitant]
     Active Substance: DOCUSATE
  5. HYDRALAZINE [Concomitant]
     Active Substance: HYDRALAZINE HYDROCHLORIDE
  6. CUVITRU [Concomitant]
     Active Substance: HUMAN IMMUNOGLOBULIN G
  7. VICTOZA [Suspect]
     Active Substance: LIRAGLUTIDE
     Indication: DIABETES MELLITUS
     Dosage: ?          QUANTITY:1.2 MG;?
     Route: 058
  8. BUPROPION XL [Concomitant]
     Active Substance: BUPROPION
  9. ELIQUIS [Concomitant]
     Active Substance: APIXABAN
  10. CYCLOBENZAPRINE. [Concomitant]
     Active Substance: CYCLOBENZAPRINE
  11. HYDROMORPHONE [Concomitant]
     Active Substance: HYDROMORPHONE
  12. HUMALOG [Concomitant]
     Active Substance: INSULIN LISPRO
  13. SENNA [Concomitant]
     Active Substance: SENNA LEAF\SENNOSIDES\SENNOSIDES A AND B
  14. VITAMIN D3 [Concomitant]
     Active Substance: CHOLECALCIFEROL
  15. DOXYCYCLINE. [Concomitant]
     Active Substance: DOXYCYCLINE
  16. INSULIN PUMP [Concomitant]
     Active Substance: DEVICE\INSULIN NOS
  17. VITAMIN C [Concomitant]
     Active Substance: ASCORBIC ACID
  18. TAMSULOSIN [Concomitant]
     Active Substance: TAMSULOSIN
  19. ALLOPURINOL. [Concomitant]
     Active Substance: ALLOPURINOL
  20. NEXIUM [Concomitant]
     Active Substance: ESOMEPRAZOLE MAGNESIUM
  21. METOPROLOL. [Concomitant]
     Active Substance: METOPROLOL
  22. ISOSORBIDE. [Concomitant]
     Active Substance: ISOSORBIDE
  23. AMLODIPINE [Concomitant]
     Active Substance: AMLODIPINE BESYLATE
  24. ZOLOFT [Concomitant]
     Active Substance: SERTRALINE HYDROCHLORIDE
  25. FINASTERIDE. [Concomitant]
     Active Substance: FINASTERIDE
  26. ECOTRIN [Concomitant]
     Active Substance: ASPIRIN
  27. MAGNESIUM OXIDE. [Concomitant]
     Active Substance: MAGNESIUM OXIDE

REACTIONS (3)
  - Blood glucose increased [None]
  - Drug ineffective [None]
  - Product quality issue [None]

NARRATIVE: CASE EVENT DATE: 20200915
